FAERS Safety Report 7248031-0 (Version None)
Quarter: 2011Q1

REPORT INFORMATION
  Report Type: 
  Country: None (occurrence: None)
  Receive Date: 20110127
  Receipt Date: 20110125
  Transmission Date: 20110831
  Serious: Yes (Other)
  Sender: FDA-Public Use
  Company Number: JP-PFIZER INC-2010161008

PATIENT
  Age: 55 Year
  Sex: Male

DRUGS (3)
  1. HALOPERIDOL [Suspect]
     Indication: NAUSEA
  2. METOCLOPRAMIDE [Suspect]
     Indication: NAUSEA
  3. HYDROXYZINE HCL [Suspect]
     Indication: NAUSEA

REACTIONS (3)
  - DRUG EFFECT DECREASED [None]
  - DELIRIUM [None]
  - EXTRAPYRAMIDAL DISORDER [None]
